FAERS Safety Report 18174273 (Version 1)
Quarter: 2020Q3

REPORT INFORMATION
  Report Type: Spontaneous
  Country: TW (occurrence: TW)
  Receive Date: 20200820
  Receipt Date: 20200820
  Transmission Date: 20201103
  Serious: Yes (Death, Other)
  Sender: FDA-Public Use
  Company Number: NVSC2019TW070409

PATIENT
  Sex: Female

DRUGS (15)
  1. OXALIPLATIN. [Suspect]
     Active Substance: OXALIPLATIN
     Indication: METASTASES TO LIVER
  2. OXALIPLATIN. [Suspect]
     Active Substance: OXALIPLATIN
     Indication: METASTASES TO SPLEEN
  3. CALCIUM FOLINATE [Suspect]
     Active Substance: LEUCOVORIN CALCIUM
     Indication: METASTASES TO LIVER
     Dosage: UNK
     Route: 065
     Dates: start: 20191121, end: 20191204
  4. FLUOROURACIL. [Suspect]
     Active Substance: FLUOROURACIL
     Indication: METASTASES TO LIVER
     Dosage: UNK
     Route: 065
     Dates: start: 20191121, end: 20191204
  5. CALCIUM FOLINATE [Suspect]
     Active Substance: LEUCOVORIN CALCIUM
     Indication: METASTASES TO SPLEEN
  6. FLUOROURACIL. [Suspect]
     Active Substance: FLUOROURACIL
     Indication: COLON CANCER
     Dosage: UNK
     Route: 065
     Dates: start: 20190823, end: 20191101
  7. FLUOROURACIL. [Suspect]
     Active Substance: FLUOROURACIL
     Indication: METASTASES TO SPLEEN
  8. IRINOTECAN [Suspect]
     Active Substance: IRINOTECAN
     Indication: COLON CANCER
     Dosage: UNK
     Route: 065
     Dates: start: 20190823, end: 20191101
  9. BEVACIZUMAB. [Suspect]
     Active Substance: BEVACIZUMAB
     Indication: METASTASES TO SPLEEN
  10. OXALIPLATIN. [Suspect]
     Active Substance: OXALIPLATIN
     Indication: COLON CANCER
     Dosage: UNK
     Route: 065
     Dates: start: 20191121, end: 20191204
  11. CALCIUM FOLINATE [Suspect]
     Active Substance: LEUCOVORIN CALCIUM
     Indication: COLON CANCER
     Dosage: UNK
     Route: 065
     Dates: start: 20190823, end: 20191101
  12. BEVACIZUMAB. [Suspect]
     Active Substance: BEVACIZUMAB
     Indication: METASTASES TO LIVER
     Dosage: UNK
     Route: 065
     Dates: start: 20191121, end: 20191204
  13. BEVACIZUMAB. [Suspect]
     Active Substance: BEVACIZUMAB
     Indication: COLON CANCER
     Dosage: UNK
     Route: 065
     Dates: start: 20190823, end: 20191101
  14. IRINOTECAN [Suspect]
     Active Substance: IRINOTECAN
     Indication: METASTASES TO SPLEEN
  15. IRINOTECAN [Suspect]
     Active Substance: IRINOTECAN
     Indication: METASTASES TO LIVER
     Dosage: UNK
     Route: 065
     Dates: start: 20191121, end: 20191204

REACTIONS (6)
  - Metastases to liver [Unknown]
  - Metastases to spleen [Unknown]
  - Metastases to ovary [Unknown]
  - Malignant neoplasm progression [Unknown]
  - Death [Fatal]
  - Colon cancer [Unknown]

NARRATIVE: CASE EVENT DATE: 20191120
